FAERS Safety Report 13893272 (Version 1)
Quarter: 2017Q3

REPORT INFORMATION
  Report Type: Spontaneous
  Country: US (occurrence: US)
  Receive Date: 20170822
  Receipt Date: 20170822
  Transmission Date: 20171127
  Serious: No
  Sender: FDA-Public Use
  Company Number: US-ROCHE-1425592

PATIENT
  Sex: Female

DRUGS (6)
  1. HERCEPTIN [Suspect]
     Active Substance: TRASTUZUMAB
     Indication: BREAST CANCER METASTATIC
     Dosage: 6 ROUNDS W/PERTUZUMAB, DOCETAXEL AND CONTINUING
     Route: 065
     Dates: start: 201304
  2. PERJETA [Suspect]
     Active Substance: PERTUZUMAB
     Indication: BREAST CANCER METASTATIC
     Route: 065
     Dates: start: 201304
  3. TAXOTERE [Concomitant]
     Active Substance: DOCETAXEL
     Indication: BREAST CANCER METASTATIC
     Dosage: 6 ROUNDS W/ HERCEPTIN, PERJETA; TAXOTERE COMPLETE
     Route: 065
     Dates: start: 201304
  4. CARBOPLATIN. [Concomitant]
     Active Substance: CARBOPLATIN
     Indication: BREAST CANCER
     Route: 065
     Dates: start: 200811
  5. HERCEPTIN [Suspect]
     Active Substance: TRASTUZUMAB
     Indication: BREAST CANCER
     Route: 065
     Dates: start: 200811
  6. TAXOTERE [Concomitant]
     Active Substance: DOCETAXEL
     Indication: BREAST CANCER
     Dosage: 6 ROUNDS WITH HERCEPTIN, CARBOPLATIN
     Route: 065
     Dates: start: 200811

REACTIONS (3)
  - Diarrhoea [Recovered/Resolved]
  - Metastatic neoplasm [Unknown]
  - Alopecia [Recovered/Resolved]
